FAERS Safety Report 24881026 (Version 2)
Quarter: 2025Q1

REPORT INFORMATION
  Report Type: Spontaneous
  Country: JP (occurrence: JP)
  Receive Date: 20250124
  Receipt Date: 20250214
  Transmission Date: 20250409
  Serious: Yes (Death, Hospitalization, Other)
  Sender: GLAXOSMITHKLINE
  Company Number: JP-GSKJP-JP2025JPN004494AA

PATIENT

DRUGS (10)
  1. DAPRODUSTAT [Suspect]
     Active Substance: DAPRODUSTAT
     Indication: Nephrogenic anaemia
     Route: 048
     Dates: start: 202309
  2. DAPRODUSTAT [Suspect]
     Active Substance: DAPRODUSTAT
     Route: 048
  3. FEBUXOSTAT [Concomitant]
     Active Substance: FEBUXOSTAT
  4. CALCITRIOL [Concomitant]
     Active Substance: CALCITRIOL
  5. ESOMEPRAZOLE [Concomitant]
     Active Substance: ESOMEPRAZOLE
  6. SILODOSIN [Concomitant]
     Active Substance: SILODOSIN
  7. DILAZEP [Concomitant]
     Active Substance: DILAZEP
  8. EPINASTINE [Concomitant]
     Active Substance: EPINASTINE
  9. DAYVIGO [Concomitant]
     Active Substance: LEMBOREXANT
  10. KREMEZIN [Concomitant]
     Active Substance: ACTIVATED CHARCOAL

REACTIONS (3)
  - Death [Fatal]
  - Cerebral infarction [Unknown]
  - Coronavirus infection [Unknown]

NARRATIVE: CASE EVENT DATE: 20240101
